FAERS Safety Report 25894370 (Version 1)
Quarter: 2025Q4

REPORT INFORMATION
  Report Type: Spontaneous
  Country: US (occurrence: US)
  Receive Date: 20251008
  Receipt Date: 20251008
  Transmission Date: 20260118
  Serious: No
  Sender: BRISTOL-MYERS SQUIBB COMPANY
  Company Number: US-BRISTOL-MYERS SQUIBB COMPANY-2025-137364

PATIENT
  Age: 85 Year
  Sex: Male
  Weight: 88.0 kg

DRUGS (2)
  1. POMALYST [Suspect]
     Active Substance: POMALIDOMIDE
     Indication: Plasma cell myeloma
     Dates: start: 20250616
  2. POMALYST [Suspect]
     Active Substance: POMALIDOMIDE
     Dosage: REFER TO NARRATIVEINCLUDECLINICAL
     Dates: start: 202510

REACTIONS (1)
  - Urticaria [Unknown]

NARRATIVE: CASE EVENT DATE: 20250927
